FAERS Safety Report 4301448-6 (Version None)
Quarter: 2004Q1

REPORT INFORMATION
  Report Type: 
  Country: None (occurrence: None)
  Receive Date: 20040220
  Receipt Date: 20040220
  Transmission Date: 20041129
  Serious: Yes (Life-Threatening, Other)
  Sender: FDA-Public Use
  Company Number: None

PATIENT
  Age: 41 Year
  Sex: Female
  Weight: 68.0396 kg

DRUGS (1)
  1. PAXIL [Suspect]
     Indication: HOT FLUSH
     Dosage: 40 MG DAILY

REACTIONS (2)
  - ACNE [None]
  - DEPRESSION [None]
